FAERS Safety Report 18992728 (Version 2)
Quarter: 2021Q2

REPORT INFORMATION
  Report Type: Spontaneous
  Country: US (occurrence: US)
  Receive Date: 20210310
  Receipt Date: 20210429
  Transmission Date: 20210717
  Serious: Yes (Other)
  Sender: FDA-Public Use
  Company Number: US-PFIZER INC-2021235954

PATIENT
  Age: 68 Year
  Sex: Female

DRUGS (1)
  1. IBRANCE [Suspect]
     Active Substance: PALBOCICLIB
     Indication: BREAST CANCER FEMALE
     Dosage: 125 MG, CYCLIC (ON DAYS 1 ? 21 THEN 7 DAYS OFF)
     Dates: start: 20210204

REACTIONS (7)
  - Glossodynia [Unknown]
  - Tongue discolouration [Unknown]
  - Gait inability [Unknown]
  - Tremor [Unknown]
  - Hemiplegia [Unknown]
  - Noninfective gingivitis [Unknown]
  - Stomatitis [Unknown]

NARRATIVE: CASE EVENT DATE: 202102
